FAERS Safety Report 17665507 (Version 1)
Quarter: 2020Q3

REPORT INFORMATION
  Report Type: Spontaneous
  Country: US (occurrence: US)
  Receive Date: 20200413
  Receipt Date: 20200413
  Transmission Date: 20201104
  Serious: Yes (Hospitalization)
  Sender: FDA-Public Use
  Company Number: None

PATIENT
  Age: 64 Year
  Sex: Female

DRUGS (1)
  1. SACITUZUMAB GOVITECAN. [Suspect]
     Active Substance: SACITUZUMAB GOVITECAN
     Indication: BREAST CANCER METASTATIC
     Dates: start: 20200303

REACTIONS (4)
  - Coronavirus infection [None]
  - Pyrexia [None]
  - Hypersomnia [None]
  - Depressed mood [None]

NARRATIVE: CASE EVENT DATE: 20200406
